FAERS Safety Report 7474305-4 (Version None)
Quarter: 2011Q2

REPORT INFORMATION
  Report Type: 
  Country: None (occurrence: None)
  Receive Date: 20110511
  Receipt Date: 20110427
  Transmission Date: 20111010
  Serious: Yes (Hospitalization, Other)
  Sender: FDA-Public Use
  Company Number: BE-ELI_LILLY_AND_COMPANY-BE201105000526

PATIENT
  Sex: Female

DRUGS (1)
  1. FORTEO [Suspect]
     Dosage: UNK UNK, UNKNOWN
     Route: 065
     Dates: start: 20100707

REACTIONS (5)
  - FALL [None]
  - WRIST FRACTURE [None]
  - WOUND [None]
  - CEREBRAL HAEMORRHAGE [None]
  - AMNESIA [None]
